FAERS Safety Report 5883543-3 (Version None)
Quarter: 2008Q3

REPORT INFORMATION
  Report Type: 
  Country: None (occurrence: None)
  Receive Date: 20080915
  Receipt Date: 20080904
  Transmission Date: 20090109
  Serious: Yes (Hospitalization)
  Sender: FDA-Public Use
  Company Number: PHHY2008NL20952

PATIENT
  Sex: Female
  Weight: 50 kg

DRUGS (3)
  1. TRILEPTAL [Suspect]
     Indication: EPILEPSY
     Dosage: 600 MG, BID
  2. TRILEPTAL [Suspect]
     Dosage: 600 MG, QID
  3. TEGRETOL [Suspect]

REACTIONS (8)
  - DRUG INEFFECTIVE [None]
  - FATIGUE [None]
  - FEELING ABNORMAL [None]
  - GRAND MAL CONVULSION [None]
  - SURGERY [None]
  - SURGICAL FAILURE [None]
  - THYROID CANCER [None]
  - THYROIDECTOMY [None]
